FAERS Safety Report 6710198-8 (Version None)
Quarter: 2010Q2

REPORT INFORMATION
  Report Type: 
  Country: None (occurrence: None)
  Receive Date: 20100430
  Receipt Date: 20100416
  Transmission Date: 20101027
  Serious: Yes (Hospitalization)
  Sender: FDA-Public Use
  Company Number: 007710

PATIENT
  Sex: Female

DRUGS (2)
  1. CERTOLIZUMAB PEGOL (CERTOLIZUMAB PEGOL) [Suspect]
     Indication: RHEUMATOID ARTHRITIS
     Dosage: (400 MG 1X/MONTH, 870-IFL-01587-014 SUBCUTANEOUS), (400 MG 1X/MONTH SUBCUTANEOUS)
     Route: 058
     Dates: start: 20030314, end: 20030801
  2. CERTOLIZUMAB PEGOL (CERTOLIZUMAB PEGOL) [Suspect]
     Indication: RHEUMATOID ARTHRITIS
     Dosage: (400 MG 1X/MONTH, 870-IFL-01587-014 SUBCUTANEOUS), (400 MG 1X/MONTH SUBCUTANEOUS)
     Route: 058
     Dates: start: 20030829, end: 20100305

REACTIONS (19)
  - ABSCESS INTESTINAL [None]
  - BLOOD POTASSIUM DECREASED [None]
  - CHEST PAIN [None]
  - DEVICE RELATED INFECTION [None]
  - DIVERTICULITIS [None]
  - DIVERTICULUM [None]
  - DYSPEPSIA [None]
  - ERYTHEMA [None]
  - GASTROINTESTINAL HAEMORRHAGE [None]
  - HAEMOGLOBIN DECREASED [None]
  - HIATUS HERNIA [None]
  - MEAN CELL VOLUME DECREASED [None]
  - NAUSEA [None]
  - OSTEOARTHRITIS [None]
  - PLATELET COUNT INCREASED [None]
  - PROTHROMBIN TIME PROLONGED [None]
  - RECTAL HAEMORRHAGE [None]
  - RED CELL DISTRIBUTION WIDTH INCREASED [None]
  - VAGINAL DISCHARGE [None]
